FAERS Safety Report 24325134 (Version 1)
Quarter: 2024Q3

REPORT INFORMATION
  Report Type: Spontaneous
  Country: US (occurrence: US)
  Receive Date: 20240916
  Receipt Date: 20240916
  Transmission Date: 20241016
  Serious: No
  Sender: JOHNSON AND JOHNSON
  Company Number: US-JNJFOC-20240880354

PATIENT
  Age: 9 Decade
  Sex: Female

DRUGS (1)
  1. MENS ROGAINE EXTRA STRENGTH [Suspect]
     Active Substance: MINOXIDIL
     Indication: Alopecia
     Dosage: USE THE SYRINGE ABOUT 3 FOR WHOLE AND 1 SYRINGE FOR THE FRONT
     Route: 061

REACTIONS (3)
  - Alopecia [Unknown]
  - Off label use [Unknown]
  - Wrong technique in product usage process [Unknown]
